FAERS Safety Report 15232191 (Version 1)
Quarter: 2018Q3

REPORT INFORMATION
  Report Type: Report from Study
  Country: None (occurrence: BR)
  Receive Date: 20180802
  Receipt Date: 20180802
  Transmission Date: 20181010
  Serious: Yes (Other)
  Sender: FDA-Public Use
  Company Number: BR-ABBVIE-18K-020-2438986-00

PATIENT
  Sex: Male
  Weight: 70 kg

DRUGS (3)
  1. HUMIRA [Suspect]
     Active Substance: ADALIMUMAB
     Indication: CROHN^S DISEASE
     Dosage: LOADING DOSE WEEK 0
     Route: 058
     Dates: start: 20140101, end: 20140101
  2. HUMIRA [Suspect]
     Active Substance: ADALIMUMAB
     Dosage: MAINTENANCE DOSE
     Route: 058
  3. HUMIRA [Suspect]
     Active Substance: ADALIMUMAB
     Dosage: LOADING DOSE WEEK 2
     Route: 058
     Dates: start: 201401, end: 201401

REACTIONS (4)
  - Drug ineffective [Unknown]
  - Intestinal stenosis [Unknown]
  - Gastrointestinal infection [Unknown]
  - Crohn^s disease [Unknown]

NARRATIVE: CASE EVENT DATE: 2018
